FAERS Safety Report 4286258-0 (Version None)
Quarter: 2004Q1

REPORT INFORMATION
  Report Type: 
  Country: None (occurrence: None)
  Receive Date: 20040205
  Receipt Date: 20040205
  Transmission Date: 20041129
  Serious: Yes (Hospitalization)
  Sender: FDA-Public Use
  Company Number: None

PATIENT
  Age: 80 Year
  Sex: Female
  Weight: 69.8 kg

DRUGS (9)
  1. IRINOTECAN - PHARMACIA [Suspect]
     Indication: RECTAL CANCER
     Dosage: 100MG/M2 DAYS I-8 IV
     Route: 042
     Dates: start: 20031006, end: 20031222
  2. CAPECITABINE ROCHE [Suspect]
     Indication: RECTAL CANCER
     Dosage: 1500 MG/M2/D FOR 14 DAYS PO
     Route: 048
     Dates: start: 20031006, end: 20031229
  3. FRAGMIN [Concomitant]
  4. PYRIDOXINE [Concomitant]
  5. CELEBREX [Concomitant]
  6. FESO4 [Concomitant]
  7. INSULIIN [Concomitant]
  8. DEXAMETHASONE [Concomitant]
  9. PROTONIX [Concomitant]

REACTIONS (9)
  - ASTHENIA [None]
  - DEEP VEIN THROMBOSIS [None]
  - DISEASE PROGRESSION [None]
  - INTERNATIONAL NORMALISED RATIO INCREASED [None]
  - INTERVERTEBRAL DISC PROTRUSION [None]
  - PAIN IN EXTREMITY [None]
  - RECTAL HAEMORRHAGE [None]
  - SACRAL PAIN [None]
  - SPINAL CORD COMPRESSION [None]
